FAERS Safety Report 12173566 (Version 1)
Quarter: 2016Q1

REPORT INFORMATION
  Report Type: Spontaneous
  Country: US (occurrence: None)
  Receive Date: 20160311
  Receipt Date: 20160311
  Transmission Date: 20160526
  Serious: Yes (Death)
  Sender: FDA-Public Use
  Company Number: None

PATIENT
  Age: 58 Year
  Sex: Female

DRUGS (22)
  1. TRACLEER [Suspect]
     Active Substance: BOSENTAN
     Indication: PULMONARY ARTERIAL HYPERTENSION
     Route: 048
     Dates: start: 201412, end: 201602
  2. FLUTICASONE (FLONASE) [Concomitant]
  3. ZITHROMAX [Concomitant]
     Active Substance: AZITHROMYCIN DIHYDRATE
  4. PREDNISONE (DELTASONE) [Concomitant]
  5. ZANAFLEX [Concomitant]
     Active Substance: TIZANIDINE HYDROCHLORIDE
  6. HYDROCODONE-ACETAMINOPHEN (NORCO) [Concomitant]
  7. BACTROBAN [Concomitant]
     Active Substance: MUPIROCIN\MUPIROCIN CALCIUM
  8. COUMADIN [Concomitant]
     Active Substance: WARFARIN SODIUM
  9. SILDENAFIL (REVATIO) [Concomitant]
  10. SYMBICORT [Concomitant]
     Active Substance: BUDESONIDE\FORMOTEROL FUMARATE DIHYDRATE
  11. GABAPENTIN (NEURONTIN) [Concomitant]
  12. ALPRAZOLAM (XANAX) [Concomitant]
  13. ALBUTEROL (PROAIR HFA) [Concomitant]
  14. TORSEMIDE (DEMADEX) [Concomitant]
  15. SPIRONOLACTONE (ALDACTONE) [Concomitant]
  16. IPRATROPIUM (ATROVENT) [Concomitant]
  17. LIPITOR [Concomitant]
     Active Substance: ATORVASTATIN CALCIUM
  18. ALBUTEROL (PROVENTIL/VENTOLIN) [Concomitant]
  19. LIDOCAINE (LIDODERM) [Concomitant]
  20. NORVASC [Concomitant]
     Active Substance: AMLODIPINE BESYLATE
  21. LOSARTAN (COZAAR) [Concomitant]
  22. BUPROPION (WELLBUTRIN SR) [Concomitant]

REACTIONS (3)
  - Somnolence [None]
  - Acute respiratory failure [None]
  - Pneumonia [None]

NARRATIVE: CASE EVENT DATE: 20160226
